FAERS Safety Report 4322971-4 (Version None)
Quarter: 2004Q1

REPORT INFORMATION
  Report Type: 
  Country: None (occurrence: None)
  Receive Date: 20040325
  Receipt Date: 20040319
  Transmission Date: 20041129
  Serious: Yes (Death)
  Sender: FDA-Public Use
  Company Number: PHBS2004BR03858

PATIENT
  Sex: Female

DRUGS (4)
  1. RITALINA [Suspect]
     Indication: PSYCHOMOTOR HYPERACTIVITY
     Dosage: 40 MG/DAY
     Route: 048
  2. RITALINA [Suspect]
     Dosage: 30 MG/DAY
     Route: 048
  3. RITALINA [Suspect]
     Dosage: 20 MG/DAY
     Route: 048
  4. SERTRALINE HCL [Concomitant]
     Dosage: 25 TO 50 MG/DAY
     Route: 065
     Dates: start: 20040101

REACTIONS (1)
  - COMPLETED SUICIDE [None]
